FAERS Safety Report 6121956-5 (Version None)
Quarter: 2009Q1

REPORT INFORMATION
  Report Type: 
  Country: None (occurrence: None)
  Receive Date: 20090317
  Receipt Date: 20090311
  Transmission Date: 20090719
  Serious: Yes (Death)
  Sender: FDA-Public Use
  Company Number: US-GILEAD-2009-0020828

PATIENT
  Sex: Female
  Weight: 90.346 kg

DRUGS (8)
  1. LETAIRIS [Suspect]
     Indication: PULMONARY ARTERIAL HYPERTENSION
     Route: 048
     Dates: start: 20090209
  2. ALLOPURINOL [Concomitant]
  3. CENTRUM SILVER [Concomitant]
  4. BUMETANIDE [Concomitant]
  5. CARVEDILOL [Concomitant]
  6. SPIRONOLACTONE [Concomitant]
  7. VYTORIN [Concomitant]
  8. ASPIRIN [Concomitant]

REACTIONS (1)
  - DEATH [None]
